FAERS Safety Report 6803823-4 (Version None)
Quarter: 2010Q2

REPORT INFORMATION
  Report Type: 
  Country: None (occurrence: None)
  Receive Date: 20100628
  Receipt Date: 20100614
  Transmission Date: 20101027
  Serious: Yes (Other)
  Sender: FDA-Public Use
  Company Number: A0866396A

PATIENT
  Age: 45 Year
  Sex: Male

DRUGS (3)
  1. SELZENTRY [Suspect]
     Indication: HIV INFECTION
     Dosage: 600MG TWICE PER DAY
     Route: 048
     Dates: start: 20100520, end: 20100525
  2. TRUVADA [Concomitant]
  3. ISENTRESS [Concomitant]

REACTIONS (1)
  - DYSPNOEA [None]
